FAERS Safety Report 23187920 (Version 1)
Quarter: 2023Q4

REPORT INFORMATION
  Report Type: Spontaneous
  Country: US (occurrence: None)
  Receive Date: 20231115
  Receipt Date: 20231115
  Transmission Date: 20240109
  Serious: Yes (Hospitalization)
  Sender: FDA-Public Use
  Company Number: None

PATIENT
  Age: 69 Year
  Sex: Female

DRUGS (9)
  1. TASIGNA [Suspect]
     Active Substance: NILOTINIB
  2. MUCINEX [Concomitant]
     Active Substance: GUAIFENESIN
  3. ENTRESTO [Concomitant]
  4. DOK (DOCUSATE SODIUM) [Concomitant]
  5. ELIQUIS [Concomitant]
     Active Substance: APIXABAN
  6. FAMOTIDINE [Concomitant]
     Active Substance: FAMOTIDINE
  7. FUROSEMIDE [Concomitant]
  8. LEVOTHYROXINE SOD [Concomitant]
  9. TRAZODONE [Concomitant]

REACTIONS (2)
  - Fluid retention [None]
  - Therapy interrupted [None]

NARRATIVE: CASE EVENT DATE: 20231027
